FAERS Safety Report 16848339 (Version 2)
Quarter: 2019Q4

REPORT INFORMATION
  Report Type: Other
  Country: GB (occurrence: GB)
  Receive Date: 20190925
  Receipt Date: 20191017
  Transmission Date: 20200122
  Serious: Yes (Congenital Anomaly, Other)
  Sender: FDA-Public Use
  Company Number: GB-LUPIN PHARMACEUTICALS INC.-2019-06097

PATIENT

DRUGS (2)
  1. COBICISTAT;DARUNAVIR [Suspect]
     Active Substance: COBICISTAT\DARUNAVIR ETHANOLATE
     Indication: HIV INFECTION
     Dosage: 1 DOSAGE FORM (1 TABLET/CAPSULE)
     Route: 064
  2. ABACAVIR AND LAMIVUDINE TABLETS [Suspect]
     Active Substance: ABACAVIR\LAMIVUDINE
     Indication: HIV INFECTION
     Dosage: 1 DOSAGE FORM (1 TABLET/CAPSULE)
     Route: 064

REACTIONS (4)
  - Foetal growth restriction [Unknown]
  - Brain injury [Unknown]
  - Gastroschisis [Unknown]
  - Foetal exposure during pregnancy [Unknown]

NARRATIVE: CASE EVENT DATE: 20190107
